FAERS Safety Report 9299395 (Version 2)
Quarter: 2013Q4

REPORT INFORMATION
  Report Type: Spontaneous
  Country: US (occurrence: US)
  Receive Date: 20130520
  Receipt Date: 20131108
  Transmission Date: 20140711
  Serious: Yes (Hospitalization)
  Sender: FDA-Public Use
  Company Number: US-B.I. PHARMACEUTICALS,INC./RIDGEFIELD-2013-BI-13937BP

PATIENT
  Age: 63 Year
  Sex: Female
  Weight: 93.91 kg

DRUGS (8)
  1. PRADAXA [Suspect]
     Indication: ANTICOAGULANT THERAPY
     Dosage: 150 MG
     Dates: start: 20120329, end: 20120722
  2. PRADAXA [Suspect]
     Indication: ATRIAL FIBRILLATION
  3. LISINOPRIL [Concomitant]
     Dosage: 5 MG
     Route: 048
  4. METOPROLOL [Concomitant]
     Dosage: 200 MG
     Route: 048
  5. ATIVAN [Concomitant]
     Dosage: 1 MG
     Route: 048
  6. FIORICET [Concomitant]
  7. ISOSORBIDE MONONITRATE [Concomitant]
     Dosage: 60 MG
     Route: 048
  8. MULTAQ [Concomitant]
     Dosage: 800 MG
     Route: 048

REACTIONS (3)
  - Subdural haematoma [Unknown]
  - Cerebral haemorrhage [Unknown]
  - Fall [Unknown]
